FAERS Safety Report 6813128-3 (Version None)
Quarter: 2010Q3

REPORT INFORMATION
  Report Type: 
  Country: None (occurrence: None)
  Receive Date: 20100701
  Receipt Date: 20100624
  Transmission Date: 20110219
  Serious: Yes (Hospitalization)
  Sender: FDA-Public Use
  Company Number: JP-PFIZER INC-2010079147

PATIENT
  Age: 83 Year
  Sex: Male

DRUGS (7)
  1. LIPITOR [Suspect]
     Dosage: 10 MG, 1X/DAY
     Route: 048
  2. CASODEX [Suspect]
     Dosage: 80 MG, 1X/DAY
     Route: 048
  3. KREMEZIN [Concomitant]
     Dosage: 2 G, 3X/DAY
  4. ALOSENN [Concomitant]
     Dosage: 0.5 G, UNK
  5. AZUNOL [Concomitant]
  6. ALINAMIN [Concomitant]
     Dosage: 50 MG, 2X/DAY
  7. METHYCOBAL [Concomitant]
     Dosage: 500 UG, 2X/DAY

REACTIONS (3)
  - GAIT DISTURBANCE [None]
  - MYOGLOBINURIA [None]
  - RHABDOMYOLYSIS [None]
